FAERS Safety Report 5300925-9 (Version None)
Quarter: 2007Q2

REPORT INFORMATION
  Report Type: 
  Country: None (occurrence: None)
  Receive Date: 20070418
  Receipt Date: 20070406
  Transmission Date: 20071010
  Serious: Yes (Other)
  Sender: FDA-Public Use
  Company Number: JP-ROCHE-492314

PATIENT
  Age: 2 Year
  Sex: Male

DRUGS (1)
  1. TAMIFLU [Suspect]
     Dosage: DRY SYRUP.
     Route: 048
     Dates: start: 20070330, end: 20070330

REACTIONS (2)
  - ABNORMAL BEHAVIOUR [None]
  - MUSCULAR WEAKNESS [None]
